FAERS Safety Report 20720231 (Version 3)
Quarter: 2022Q2

REPORT INFORMATION
  Report Type: Report from Study
  Country: US (occurrence: US)
  Receive Date: 20220418
  Receipt Date: 20220622
  Transmission Date: 20220721
  Serious: No
  Sender: FDA-Public Use
  Company Number: US-NOVARTISTESTPH-NVSC2022US085437

PATIENT
  Sex: Female

DRUGS (1)
  1. TABRECTA [Suspect]
     Active Substance: CAPMATINIB
     Indication: Lung neoplasm malignant
     Dosage: 400 MG, BID
     Route: 048

REACTIONS (7)
  - Hot flush [Recovered/Resolved]
  - Alopecia [Not Recovered/Not Resolved]
  - Anxiety [Recovering/Resolving]
  - Fatigue [Recovering/Resolving]
  - Cough [Recovered/Resolved]
  - Nausea [Recovering/Resolving]
  - Constipation [Recovering/Resolving]
